FAERS Safety Report 6318414-1 (Version None)
Quarter: 2009Q3

REPORT INFORMATION
  Report Type: 
  Country: None (occurrence: None)
  Receive Date: 20090821
  Receipt Date: 20090811
  Transmission Date: 20100115
  Serious: Yes (Death)
  Sender: FDA-Public Use
  Company Number: US-PFIZER INC-2009238991

PATIENT
  Sex: Male

DRUGS (9)
  1. REVATIO [Suspect]
     Indication: PULMONARY HYPERTENSION
     Dosage: 20 MG, 3X/DAY
     Dates: start: 20081229, end: 20090519
  2. ALBUTEROL [Concomitant]
  3. SPIRIVA [Concomitant]
  4. SYNTHROID [Concomitant]
  5. PROSCAR [Concomitant]
  6. LASIX [Concomitant]
  7. DIGOXIN [Concomitant]
  8. TAMSULOSIN HYDROCHLORIDE [Concomitant]
  9. MUCINEX [Concomitant]

REACTIONS (1)
  - CHRONIC RESPIRATORY FAILURE [None]
